FAERS Safety Report 13909752 (Version 2)
Quarter: 2017Q3

REPORT INFORMATION
  Report Type: Spontaneous
  Country: BR (occurrence: BR)
  Receive Date: 20170828
  Receipt Date: 20170830
  Transmission Date: 20171127
  Serious: Yes (Hospitalization, Other)
  Sender: FDA-Public Use
  Company Number: BR-ROCHE-1980945

PATIENT
  Sex: Female

DRUGS (2)
  1. HERCEPTIN [Suspect]
     Active Substance: TRASTUZUMAB
     Indication: OSTEOLYSIS
  2. HERCEPTIN [Suspect]
     Active Substance: TRASTUZUMAB
     Indication: BREAST CANCER
     Route: 042
     Dates: start: 2004

REACTIONS (8)
  - Sepsis [Unknown]
  - Hepatotoxicity [Unknown]
  - Pyrexia [Unknown]
  - Chills [Unknown]
  - C-reactive protein increased [Unknown]
  - Pneumonitis [Unknown]
  - Leukocytosis [Unknown]
  - Ill-defined disorder [Unknown]
